FAERS Safety Report 9394438 (Version 1)
Quarter: 2013Q3

REPORT INFORMATION
  Report Type: Spontaneous
  Country: US (occurrence: US)
  Receive Date: 20130711
  Receipt Date: 20130711
  Transmission Date: 20140515
  Serious: No
  Sender: FDA-Public Use
  Company Number: US-PFIZER INC-2013201652

PATIENT
  Age: 46 Year
  Sex: Male

DRUGS (1)
  1. SUTENT [Suspect]
     Indication: RENAL CANCER
     Dosage: ONE 12.5 MG AND 25 MG DAILY, 4 WEEKS ON AND 2 WEEKS OFF

REACTIONS (2)
  - Disease progression [Unknown]
  - Renal cancer [Unknown]
